FAERS Safety Report 17187130 (Version 2)
Quarter: 2019Q4

REPORT INFORMATION
  Report Type: Spontaneous
  Country: US (occurrence: US)
  Receive Date: 20191220
  Receipt Date: 20191223
  Transmission Date: 20200122
  Serious: Yes (Death, Disabling)
  Sender: FDA-Public Use
  Company Number: US-CELGENEUS-USA-20190906539

PATIENT
  Age: 81 Year
  Sex: Female

DRUGS (2)
  1. REVLIMID [Suspect]
     Active Substance: LENALIDOMIDE
     Indication: MYELODYSPLASTIC SYNDROME
     Dosage: 5 MILLIGRAM
     Route: 048
     Dates: start: 20190517
  2. REVLIMID [Suspect]
     Active Substance: LENALIDOMIDE
     Dosage: 2.5 MILLIGRAM
     Route: 048
     Dates: start: 201906, end: 201908

REACTIONS (2)
  - Neutropenia [Not Recovered/Not Resolved]
  - Myelodysplastic syndrome [Fatal]

NARRATIVE: CASE EVENT DATE: 201905
